FAERS Safety Report 10993986 (Version 1)
Quarter: 2015Q2

REPORT INFORMATION
  Report Type: Spontaneous
  Country: FR (occurrence: None)
  Receive Date: 20150403
  Receipt Date: 20150403
  Transmission Date: 20150821
  Serious: Yes (Hospitalization)
  Sender: FDA-Public Use
  Company Number: FK201501580

PATIENT
  Age: 73 Year
  Sex: Male

DRUGS (3)
  1. ROPIVACAINE FRESENIUS KABI (NOT SPECIFIED) (ROPIVACAINE HYDROCHLORIDE) (ROPIVACAINE HYDROCHLORIDE) [Suspect]
     Active Substance: ROPIVACAINE HYDROCHLORIDE
     Indication: GENERAL ANAESTHESIA
     Route: 008
     Dates: start: 20141215, end: 20141216
  2. MORPHINE AGUETTANT [Suspect]
     Active Substance: MORPHINE HYDROCHLORIDE
     Indication: ANALGESIC THERAPY
     Route: 042
     Dates: start: 20141215
  3. SUFENTANIL [Suspect]
     Active Substance: SUFENTANIL
     Indication: GENERAL ANAESTHESIA
     Route: 008
     Dates: start: 20141215, end: 20141216

REACTIONS (5)
  - Overdose [None]
  - Heart rate increased [None]
  - Respiratory distress [None]
  - Cyanosis [None]
  - Coma scale abnormal [None]

NARRATIVE: CASE EVENT DATE: 20141216
